FAERS Safety Report 6018919-7 (Version None)
Quarter: 2008Q4

REPORT INFORMATION
  Report Type: 
  Country: None (occurrence: None)
  Receive Date: 20081224
  Receipt Date: 20081216
  Transmission Date: 20090506
  Serious: Yes (Other)
  Sender: FDA-Public Use
  Company Number: BR-PFIZER INC-2008055790

PATIENT

DRUGS (1)
  1. ACCUPRIL [Suspect]
     Indication: HYPERTENSION
     Route: 048
     Dates: start: 19980101

REACTIONS (3)
  - DIABETES MELLITUS [None]
  - PROSTATIC DISORDER [None]
  - WEIGHT DECREASED [None]
